FAERS Safety Report 9763490 (Version 1)
Quarter: 2013Q4

REPORT INFORMATION
  Report Type: Spontaneous
  Country: US (occurrence: US)
  Receive Date: 20131216
  Receipt Date: 20131216
  Transmission Date: 20140711
  Serious: No
  Sender: FDA-Public Use
  Company Number: US-BIOGENIDEC-2013BI107057

PATIENT
  Sex: Male

DRUGS (10)
  1. TECFIDERA [Suspect]
     Indication: MULTIPLE SCLEROSIS
     Route: 048
     Dates: start: 20131018, end: 20131024
  2. TECFIDERA [Suspect]
     Indication: MULTIPLE SCLEROSIS
     Route: 048
     Dates: start: 20131025
  3. CALTRATE [Concomitant]
  4. ROPINIROLE HCL [Concomitant]
  5. GABAPENTIN [Concomitant]
  6. PRAVASTATIN SODIUM [Concomitant]
  7. LISINOPRIL [Concomitant]
  8. BACLOFEN [Concomitant]
  9. TEMAZEPAM [Concomitant]
  10. SW OMEPRAZOLE DR [Concomitant]

REACTIONS (1)
  - Flushing [Unknown]
